FAERS Safety Report 5427421-2 (Version None)
Quarter: 2007Q3

REPORT INFORMATION
  Report Type: 
  Country: None (occurrence: None)
  Receive Date: 20070824
  Receipt Date: 20070824
  Transmission Date: 20080115
  Serious: Yes (Life-Threatening, Hospitalization)
  Sender: FDA-Public Use
  Company Number: None

PATIENT
  Age: 48 Year
  Sex: Female
  Weight: 65.7716 kg

DRUGS (4)
  1. PREMPHASE 0.625 MG WYETH PHARMACEUTICALS [Suspect]
     Indication: HORMONE REPLACEMENT THERAPY
     Dosage: .625 MG DAILY PO
     Route: 048
     Dates: start: 20060101, end: 20070810
  2. TRIAMTERENE/HCTZ 75/30 [Concomitant]
  3. KLOR-CON [Concomitant]
  4. ENALIPRIL [Concomitant]

REACTIONS (2)
  - PULMONARY EMBOLISM [None]
  - PULMONARY INFARCTION [None]
